FAERS Safety Report 14208282 (Version 1)
Quarter: 2017Q4

REPORT INFORMATION
  Report Type: Spontaneous
  Country: BE (occurrence: BE)
  Receive Date: 20171121
  Receipt Date: 20171121
  Transmission Date: 20180321
  Serious: Yes (Hospitalization, Other)
  Sender: FDA-Public Use
  Company Number: BE-ELI_LILLY_AND_COMPANY-BE201711007504

PATIENT
  Age: 39 Year
  Sex: Male

DRUGS (1)
  1. ZYPADHERA [Suspect]
     Active Substance: OLANZAPINE PAMOATE
     Indication: PRODUCT USED FOR UNKNOWN INDICATION
     Dosage: 405 MG, MONTHLY (1/M)
     Route: 030

REACTIONS (6)
  - Hallucination, visual [Unknown]
  - Somnolence [Unknown]
  - Gait disturbance [Unknown]
  - Psychomotor hyperactivity [Unknown]
  - Akathisia [Unknown]
  - Malaise [Unknown]
